FAERS Safety Report 10443719 (Version 1)
Quarter: 2014Q3

REPORT INFORMATION
  Report Type: Spontaneous
  Country: JP (occurrence: JP)
  Receive Date: 20140910
  Receipt Date: 20140910
  Transmission Date: 20150326
  Serious: No
  Sender: FDA-Public Use
  Company Number: PHHY2014JP109184

PATIENT
  Age: 67 Year
  Sex: Male

DRUGS (2)
  1. DASATINIB [Concomitant]
     Active Substance: DASATINIB
  2. NILOTINIB [Suspect]
     Active Substance: NILOTINIB
     Indication: CHRONIC MYELOID LEUKAEMIA
     Dates: start: 201107

REACTIONS (1)
  - Hyperglycaemia [Unknown]
